FAERS Safety Report 8488459-4 (Version None)
Quarter: 2012Q3

REPORT INFORMATION
  Report Type: 
  Country: None (occurrence: None)
  Receive Date: 20120705
  Receipt Date: 20120625
  Transmission Date: 20120928
  Serious: Yes (Hospitalization)
  Sender: FDA-Public Use
  Company Number: FR-JNJFOC-20120614572

PATIENT
  Sex: Male
  Weight: 40 kg

DRUGS (3)
  1. PREDNISONE [Concomitant]
  2. HUMIRA [Concomitant]
     Dates: start: 20091216
  3. REMICADE [Suspect]
     Indication: CROHN'S DISEASE
     Route: 042
     Dates: start: 20081213

REACTIONS (1)
  - CLOSTRIDIAL INFECTION [None]
